FAERS Safety Report 8165592-8 (Version None)
Quarter: 2012Q1

REPORT INFORMATION
  Report Type: 
  Country: None (occurrence: None)
  Receive Date: 20120103
  Receipt Date: 20111117
  Transmission Date: 20120608
  Serious: No
  Sender: FDA-Public Use
  Company Number: AE-2011-002429

PATIENT
  Age: 58 Year
  Sex: Male
  Weight: 85.7298 kg

DRUGS (5)
  1. RIBAVIRIN [Concomitant]
  2. PENICILLIN [Concomitant]
  3. PEGINTERFERON (PEGINTERFERON ALFA-2A) [Concomitant]
  4. BENICAR [Concomitant]
  5. INCIVEK [Suspect]
     Dosage: 2250 MG (750 MG,3 IN 1 D),ORAL
     Route: 048
     Dates: start: 20110923

REACTIONS (3)
  - FULL BLOOD COUNT DECREASED [None]
  - FATIGUE [None]
  - WEIGHT INCREASED [None]
